APPROVED DRUG PRODUCT: ERYTHROMYCIN ESTOLATE
Active Ingredient: ERYTHROMYCIN ESTOLATE
Strength: EQ 250MG BASE/5ML
Dosage Form/Route: SUSPENSION;ORAL
Application: A062362 | Product #001
Applicant: LIFE LABORATORIES INC
Approved: Dec 17, 1982 | RLD: No | RS: No | Type: DISCN